FAERS Safety Report 5836114-9 (Version None)
Quarter: 2008Q3

REPORT INFORMATION
  Report Type: 
  Country: None (occurrence: None)
  Receive Date: 20080805
  Receipt Date: 20080721
  Transmission Date: 20090109
  Serious: Yes (Hospitalization)
  Sender: FDA-Public Use
  Company Number: 2008BI006781

PATIENT
  Age: 76 Year
  Sex: Female

DRUGS (4)
  1. AVONEX [Suspect]
     Indication: RELAPSING-REMITTING MULTIPLE SCLEROSIS
     Dosage: 30 UG;QW;IM
     Route: 030
  2. BISOPROLOL FUMARATE [Concomitant]
  3. FUROSEMIDE [Concomitant]
  4. CLIMOPAX [Concomitant]

REACTIONS (2)
  - BREAST CANCER STAGE II [None]
  - OESTROGEN RECEPTOR ASSAY POSITIVE [None]
